FAERS Safety Report 6303920-6 (Version None)
Quarter: 2009Q3

REPORT INFORMATION
  Report Type: 
  Country: None (occurrence: None)
  Receive Date: 20090810
  Receipt Date: 20090810
  Transmission Date: 20100115
  Serious: Yes (Other)
  Sender: FDA-Public Use
  Company Number: None

PATIENT
  Sex: Female
  Weight: 53.978 kg

DRUGS (4)
  1. VOLTAREN [Suspect]
     Indication: INFLAMMATION
     Dosage: 1-2GMS 2X'S DAYS TOPICAL
     Route: 061
     Dates: start: 20090722
  2. VOLTAREN [Suspect]
     Indication: PAIN
     Dosage: 1-2GMS 2X'S DAYS TOPICAL
     Route: 061
     Dates: start: 20090722
  3. VOLTAREN [Suspect]
     Indication: INFLAMMATION
     Dosage: 1-2GMS 2X'S DAYS TOPICAL
     Route: 061
     Dates: start: 20090723
  4. VOLTAREN [Suspect]
     Indication: PAIN
     Dosage: 1-2GMS 2X'S DAYS TOPICAL
     Route: 061
     Dates: start: 20090723

REACTIONS (2)
  - HYPOVENTILATION [None]
  - PARAESTHESIA [None]
